FAERS Safety Report 14676529 (Version 1)
Quarter: 2018Q1

REPORT INFORMATION
  Report Type: Spontaneous
  Country: DK (occurrence: DK)
  Receive Date: 20180324
  Receipt Date: 20180324
  Transmission Date: 20180509
  Serious: Yes (Hospitalization)
  Sender: FDA-Public Use
  Company Number: DK-BRISTOL-MYERS SQUIBB COMPANY-BMS-2018-024133

PATIENT
  Age: 89 Year
  Sex: Female

DRUGS (9)
  1. NATRIUMKLORID [Concomitant]
     Indication: BLOOD SODIUM DECREASED
     Dosage: 750 MG, 1 DAY
     Route: 048
     Dates: start: 20171013
  2. CLOPIDOGREL [Concomitant]
     Active Substance: CLOPIDOGREL BISULFATE
     Indication: THROMBOSIS PROPHYLAXIS
     Dosage: 75 MG, 1 DAY
     Route: 048
     Dates: start: 20180131
  3. KESTINE [Concomitant]
     Active Substance: EBASTINE
     Indication: SEASONAL ALLERGY
     Dosage: 10 MG, 1 DAY
     Route: 048
     Dates: start: 20121012, end: 20180205
  4. OXYCODONE HYDROCHLORIDE. [Suspect]
     Active Substance: OXYCODONE HYDROCHLORIDE
     Indication: PAIN
     Dosage: 10 MG, 1 DAY
     Route: 048
     Dates: start: 20180209
  5. HYDREA [Suspect]
     Active Substance: HYDROXYUREA
     Indication: PRODUCT USED FOR UNKNOWN INDICATION
     Dosage: 500 MG, 1 DAY
     Route: 048
     Dates: start: 20180131
  6. PAMOL [Concomitant]
     Active Substance: ACETAMINOPHEN
     Indication: PAIN
     Dosage: 500 MG, UNK
     Route: 048
  7. ZOPICLONE [Concomitant]
     Active Substance: ZOPICLONE
     Indication: INSOMNIA
     Dosage: 3.75 MG, UNK
     Route: 048
     Dates: start: 20171024, end: 20180205
  8. LAXOBERAL [Concomitant]
     Active Substance: SODIUM PICOSULFATE
     Indication: CONSTIPATION
     Dosage: 7.5 MG/ML, QD
     Route: 048
     Dates: start: 20171109, end: 20180205
  9. CORODIL                            /00042901/ [Concomitant]
     Active Substance: DIPYRIDAMOLE
     Indication: BLOOD PRESSURE MEASUREMENT
     Dosage: 10 MG, 1 DAY
     Route: 048
     Dates: start: 20180130

REACTIONS (2)
  - Constipation [Recovered/Resolved]
  - Incorrect dose administered [Recovered/Resolved]
